FAERS Safety Report 6089883-X (Version None)
Quarter: 2009Q1

REPORT INFORMATION
  Report Type: 
  Country: None (occurrence: None)
  Receive Date: 20090224
  Receipt Date: 20090217
  Transmission Date: 20090719
  Serious: Yes (Hospitalization)
  Sender: FDA-Public Use
  Company Number: US-GILEAD-2008-0018435

PATIENT
  Sex: Male

DRUGS (10)
  1. LETAIRIS [Suspect]
     Indication: PULMONARY HYPERTENSION
     Route: 048
     Dates: start: 20080722
  2. LIPITOR [Concomitant]
  3. RISPERDAL [Concomitant]
  4. ARICEPT [Concomitant]
  5. NEXIUM [Concomitant]
  6. NAMENDA [Concomitant]
  7. ZOLOFT [Concomitant]
  8. PLAVIX [Concomitant]
  9. ZETIA [Concomitant]
  10. PROVIGIL [Concomitant]

REACTIONS (4)
  - DIARRHOEA [None]
  - GASTROOESOPHAGEAL REFLUX DISEASE [None]
  - NAUSEA [None]
  - WEIGHT DECREASED [None]
